FAERS Safety Report 12369416 (Version 1)
Quarter: 2016Q2

REPORT INFORMATION
  Report Type: Spontaneous
  Country: US (occurrence: None)
  Receive Date: 20160513
  Receipt Date: 20160513
  Transmission Date: 20160815
  Serious: Yes (Other)
  Sender: FDA-Public Use
  Company Number: None

PATIENT
  Age: 17 Year
  Sex: Female
  Weight: 53.13 kg

DRUGS (1)
  1. ORTHO TRI CYCLEN LO [Suspect]
     Active Substance: ETHINYL ESTRADIOL\NORGESTIMATE
     Indication: HORMONE LEVEL ABNORMAL
     Dosage: 0.18/0.215/0.25MG-25MG 1 TAB DAILY
     Dates: start: 20160303

REACTIONS (3)
  - Abdominal pain upper [None]
  - Product substitution issue [None]
  - Adverse reaction [None]

NARRATIVE: CASE EVENT DATE: 20160307
